FAERS Safety Report 9704943 (Version 2)
Quarter: 2013Q4

REPORT INFORMATION
  Report Type: Report from Study
  Country: CA (occurrence: CA)
  Receive Date: 20131122
  Receipt Date: 20131206
  Transmission Date: 20140711
  Serious: Yes (Hospitalization, Other)
  Sender: FDA-Public Use
  Company Number: PHHY2013CA134362

PATIENT
  Age: 87 Year
  Sex: Male

DRUGS (16)
  1. ACLASTA [Suspect]
     Indication: OSTEOPOROSIS
     Dosage: UNK
     Route: 042
     Dates: start: 201106
  2. ACLASTA [Suspect]
     Dosage: UNK
     Route: 042
     Dates: start: 201206
  3. HUMALOG [Concomitant]
     Indication: DIABETES MELLITUS
     Dosage: 3 DF, (20-15-24-0)
  4. LANTUS [Concomitant]
     Indication: DIABETES MELLITUS
     Dosage: 1 DF,
  5. AMLODIPINE [Concomitant]
     Indication: HYPERTENSION
     Dosage: 1 DF, QD
  6. RAMIPRIL [Concomitant]
     Indication: HYPERTENSION
     Dosage: 1 DF, BID
  7. CRESTOR [Concomitant]
     Indication: HYPERCHOLESTEROLAEMIA
     Dosage: 1 DF, QD
  8. LASIX [Concomitant]
     Dosage: 2 DF, BID (40-0-20-0)
  9. ASA [Concomitant]
     Dosage: 1 DF, QD
  10. KAYEXALATE [Concomitant]
     Indication: BLOOD POTASSIUM INCREASED
     Dosage: UNK UKN, UNK
  11. CALCIUM [Concomitant]
     Dosage: 2 DF, BID
  12. VITAMIN D [Concomitant]
     Dosage: 1 DF, ONCE DAILY
  13. FUROSEMIDE [Concomitant]
     Dosage: UNK UKN, UNK
  14. ANGIOTENSIN CONVERTING ENZYME BLOCKERS [Concomitant]
     Dosage: UNK UKN, UNK
  15. CEPHALEXIN [Concomitant]
     Dosage: UNK UKN, UNK
     Dates: start: 20131112
  16. EZETROL [Concomitant]
     Indication: HYPERLIPIDAEMIA
     Dosage: 1 DF, QD

REACTIONS (14)
  - Cardiac infection [Recovered/Resolved]
  - Post procedural complication [Recovered/Resolved]
  - Alanine aminotransferase increased [Recovered/Resolved]
  - Liver injury [Unknown]
  - Macular degeneration [Unknown]
  - Blood phosphorus increased [Unknown]
  - Blood pressure systolic increased [Unknown]
  - Blood creatinine increased [Unknown]
  - Glycosylated haemoglobin increased [Unknown]
  - Blood albumin increased [Unknown]
  - Blood glucose increased [Unknown]
  - Blood creatine phosphokinase increased [Unknown]
  - Blood calcium decreased [Unknown]
  - Bone density decreased [Unknown]
